FAERS Safety Report 6686001-1 (Version None)
Quarter: 2010Q2

REPORT INFORMATION
  Report Type: 
  Country: None (occurrence: None)
  Receive Date: 20100415
  Receipt Date: 20100415
  Transmission Date: 20101027
  Serious: Yes (Hospitalization)
  Sender: FDA-Public Use
  Company Number: None

PATIENT
  Age: 80 Year
  Sex: Female

DRUGS (10)
  1. ERLOTINIB HYDROCHLORIDE [Suspect]
     Indication: CERVIX CARCINOMA RECURRENT
     Dosage: 150MG ONCE A DAY PO
     Route: 048
     Dates: start: 20080605, end: 20080716
  2. ADALAT [Concomitant]
  3. ATENOLOL [Concomitant]
  4. LOSARTAN POTASSIUM [Concomitant]
  5. FLUOXETINE [Concomitant]
  6. SYNTHROID [Concomitant]
  7. CLONAZEPAM [Concomitant]
  8. SIMVASTATIN [Concomitant]
  9. CONJUGATED ESTROGEN [Concomitant]
  10. TEMAZEPAM [Concomitant]

REACTIONS (8)
  - DECREASED APPETITE [None]
  - DEHYDRATION [None]
  - EYE IRRITATION [None]
  - FATIGUE [None]
  - PRURITUS [None]
  - RASH [None]
  - SWELLING [None]
  - VISUAL ACUITY REDUCED [None]
